FAERS Safety Report 5810919-2 (Version None)
Quarter: 2008Q3

REPORT INFORMATION
  Report Type: 
  Country: None (occurrence: None)
  Receive Date: 20080716
  Receipt Date: 20080704
  Transmission Date: 20090109
  Serious: Yes (Disabling, Other)
  Sender: FDA-Public Use
  Company Number: PHHY2008NO12688

PATIENT
  Sex: Male

DRUGS (3)
  1. RITALIN [Suspect]
     Indication: ATTENTION DEFICIT/HYPERACTIVITY DISORDER
     Dosage: 20-30MG DAILY
     Route: 048
     Dates: start: 20060712, end: 20070607
  2. CONCERTA [Suspect]
     Indication: ATTENTION DEFICIT/HYPERACTIVITY DISORDER
     Dosage: 36MG/DAY
     Route: 048
     Dates: start: 20070608, end: 20080612
  3. CONCERTA [Suspect]
     Dosage: 36 TO 54 MG/DAY
     Route: 048
     Dates: start: 20060501, end: 20080516

REACTIONS (2)
  - DECREASED APPETITE [None]
  - GROWTH RETARDATION [None]
